FAERS Safety Report 6892905-7 (Version None)
Quarter: 2010Q3

REPORT INFORMATION
  Report Type: 
  Country: None (occurrence: None)
  Receive Date: 20100731
  Receipt Date: 20081031
  Transmission Date: 20110219
  Serious: No
  Sender: FDA-Public Use
  Company Number: US-PFIZER INC-2005140342

PATIENT
  Sex: Female
  Weight: 52.16 kg

DRUGS (7)
  1. NORVASC [Suspect]
     Indication: HYPERTENSION
     Route: 065
     Dates: start: 20050101, end: 20050101
  2. NORVASC [Suspect]
     Dates: start: 20050101
  3. LISINOPRIL [Concomitant]
     Indication: HYPERTENSION
  4. LOPRESSOR [Concomitant]
     Indication: HYPERTENSION
  5. TAMOXIFEN CITRATE [Concomitant]
     Indication: BREAST CANCER
  6. ICAPS [Concomitant]
     Indication: CATARACT
  7. LOVASTATIN [Concomitant]
     Indication: BLOOD CHOLESTEROL INCREASED

REACTIONS (2)
  - OEDEMA PERIPHERAL [None]
  - URINARY INCONTINENCE [None]
